FAERS Safety Report 8045961-7 (Version None)
Quarter: 2012Q1

REPORT INFORMATION
  Report Type: 
  Country: None (occurrence: None)
  Receive Date: 20120113
  Receipt Date: 20120109
  Transmission Date: 20120608
  Serious: Yes (Other)
  Sender: FDA-Public Use
  Company Number: DE-GLAXOSMITHKLINE-D0074025A

PATIENT
  Sex: Female

DRUGS (2)
  1. CONTRACEPTIVE [Suspect]
     Route: 065
  2. LAMICTAL [Suspect]
     Indication: EPILEPSY
     Dosage: 100MG TWICE PER DAY
     Route: 065

REACTIONS (1)
  - DRUG WITHDRAWAL CONVULSIONS [None]
